FAERS Safety Report 12507260 (Version 1)
Quarter: 2016Q2

REPORT INFORMATION
  Report Type: Spontaneous
  Country: US (occurrence: US)
  Receive Date: 20160629
  Receipt Date: 20160629
  Transmission Date: 20160815
  Serious: No
  Sender: FDA-Public Use
  Company Number: US-009507513-1606USA006722

PATIENT
  Age: 33 Year
  Sex: Female
  Weight: 68.27 kg

DRUGS (1)
  1. IMPLANON [Suspect]
     Active Substance: ETONOGESTREL
     Indication: CONTRACEPTION
     Dosage: EVERY 3 YEARS
     Route: 059

REACTIONS (7)
  - Menorrhagia [Unknown]
  - Dizziness [Unknown]
  - Urticaria [Unknown]
  - Hypertension [Unknown]
  - Headache [Unknown]
  - Pruritus generalised [Unknown]
  - Metrorrhagia [Unknown]
